FAERS Safety Report 14313338 (Version 8)
Quarter: 2022Q1

REPORT INFORMATION
  Report Type: Spontaneous
  Country: CZ (occurrence: CZ)
  Receive Date: 20171221
  Receipt Date: 20220309
  Transmission Date: 20220423
  Serious: Yes (Hospitalization, Other)
  Sender: FDA-Public Use
  Company Number: CZ-MYLANLABS-2017M1077653

PATIENT
  Age: 60 Year
  Sex: Male

DRUGS (18)
  1. LINEZOLID [Suspect]
     Active Substance: LINEZOLID
     Indication: Endocarditis
     Dosage: UNK
     Route: 065
  2. LINEZOLID [Suspect]
     Active Substance: LINEZOLID
     Indication: Enterococcal infection
     Dosage: UNK
     Route: 065
     Dates: start: 2017, end: 2017
  3. PIPERACILLIN SODIUM\TAZOBACTAM SODIUM [Suspect]
     Active Substance: PIPERACILLIN SODIUM\TAZOBACTAM SODIUM
     Indication: Enterococcal infection
     Dosage: UNK
     Route: 065
  4. PIPERACILLIN SODIUM\TAZOBACTAM SODIUM [Suspect]
     Active Substance: PIPERACILLIN SODIUM\TAZOBACTAM SODIUM
     Indication: Endocarditis
     Dosage: UNK
     Route: 065
     Dates: start: 2017, end: 2017
  5. AMPICILLIN SODIUM\SULBACTAM SODIUM [Suspect]
     Active Substance: AMPICILLIN SODIUM\SULBACTAM SODIUM
     Indication: Enterococcal infection
     Dosage: UNK
     Route: 065
  6. AMPICILLIN SODIUM\SULBACTAM SODIUM [Suspect]
     Active Substance: AMPICILLIN SODIUM\SULBACTAM SODIUM
     Indication: Endocarditis
  7. VANCOMYCIN [Suspect]
     Active Substance: VANCOMYCIN
     Indication: Salmonella test positive
     Dosage: 1.5 GRAM, BID (1.5 G, BID)
     Route: 042
     Dates: start: 2017
  8. VANCOMYCIN [Suspect]
     Active Substance: VANCOMYCIN
     Dosage: UNK
     Dates: start: 2017
  9. CIPROFLOXACIN [Suspect]
     Active Substance: CIPROFLOXACIN
     Indication: Salmonella test positive
     Dosage: 500 MILLIGRAM, TID
     Route: 048
     Dates: start: 2017, end: 2017
  10. CIPROFLOXACIN [Suspect]
     Active Substance: CIPROFLOXACIN
     Indication: Evidence based treatment
     Dosage: UNK
     Dates: start: 2017, end: 2017
  11. CIPROFLOXACIN [Suspect]
     Active Substance: CIPROFLOXACIN
     Indication: Antibiotic therapy
     Dosage: 500 MILLIGRAM, QD
     Route: 065
  12. CIPROFLOXACIN [Suspect]
     Active Substance: CIPROFLOXACIN
     Indication: Endocarditis
     Dosage: 500 MG, QD (500 MG, 3X/DAY (EVERY 8 HOURS))
     Route: 048
     Dates: start: 2017, end: 2017
  13. AMPICILLIN [Suspect]
     Active Substance: AMPICILLIN
     Indication: Endocarditis
     Dosage: 1500 MG, TID
     Route: 048
  14. AMPICILLIN [Suspect]
     Active Substance: AMPICILLIN
     Dosage: UNK
     Dates: start: 2017, end: 2017
  15. GENTAMICIN [Suspect]
     Active Substance: GENTAMICIN
     Indication: Endocarditis
     Dosage: UNK
     Route: 065
  16. GENTAMICIN [Suspect]
     Active Substance: GENTAMICIN
     Indication: Enterococcal infection
     Dosage: UNK
     Route: 065
     Dates: start: 2017, end: 2017
  17. HEPARIN [Concomitant]
     Active Substance: HEPARIN SODIUM
     Indication: Haemarthrosis
     Dosage: UNK
     Route: 065
  18. ENOXAPARIN [Concomitant]
     Active Substance: ENOXAPARIN
     Indication: Deep vein thrombosis
     Dosage: 0.8 MILLILITER, BID (0.8 ML, BID)
     Route: 058

REACTIONS (6)
  - Hepatotoxicity [Recovered/Resolved]
  - Decreased appetite [Recovered/Resolved]
  - Drug ineffective [Recovered/Resolved]
  - Nutritional condition abnormal [Recovering/Resolving]
  - Weight decreased [Unknown]
  - Diarrhoea [Recovered/Resolved]

NARRATIVE: CASE EVENT DATE: 20170101
